FAERS Safety Report 9992798 (Version 1)
Quarter: 2014Q1

REPORT INFORMATION
  Report Type: Report from Study
  Country: US (occurrence: US)
  Receive Date: 20140310
  Receipt Date: 20140310
  Transmission Date: 20141002
  Serious: No
  Sender: FDA-Public Use
  Company Number: US-ABBVIE-13P-163-1132065-00

PATIENT
  Age: 28 Year
  Sex: Female

DRUGS (2)
  1. LUPRON DEPOT [Suspect]
     Indication: ENDOMETRIOSIS
     Dates: start: 20130706
  2. NORETHINDRONE ACETATE [Concomitant]
     Indication: PRODUCT USED FOR UNKNOWN INDICATION
     Dosage: DAILY
     Route: 048

REACTIONS (6)
  - Crying [Unknown]
  - Abdominal pain [Recovering/Resolving]
  - Emotional disorder [Unknown]
  - Pain [Recovering/Resolving]
  - Menorrhagia [Recovering/Resolving]
  - Mood swings [Not Recovered/Not Resolved]
